FAERS Safety Report 4924400-6 (Version None)
Quarter: 2006Q1

REPORT INFORMATION
  Report Type: 
  Country: None (occurrence: None)
  Receive Date: 20060221
  Receipt Date: 20060207
  Transmission Date: 20060701
  Serious: Yes (Other)
  Sender: FDA-Public Use
  Company Number: 2005087429

PATIENT
  Age: 45 Year
  Sex: Female
  Weight: 84.8226 kg

DRUGS (5)
  1. BEXTRA [Suspect]
     Indication: ILL-DEFINED DISORDER
     Dosage: 10 MG (10 MG, 1 IN 1 D),
     Dates: start: 20020918
  2. CELEBREX [Suspect]
     Indication: ILL-DEFINED DISORDER
     Dosage: 200 MG (200 MG, 1 IN 1 D),
  3. VIOXX [Suspect]
     Indication: ILL-DEFINED DISORDER
     Dosage: 12.5MG TO 25MG DAILY,
     Dates: start: 20020101
  4. NORTRIPTYLINE HCL [Concomitant]
  5. FLEXERIL [Concomitant]

REACTIONS (44)
  - ACTIVITIES OF DAILY LIVING IMPAIRED [None]
  - ARTHRALGIA [None]
  - ASTHENIA [None]
  - BACK PAIN [None]
  - BOWEL MOVEMENT IRREGULARITY [None]
  - BURSITIS [None]
  - CHEMICAL INJURY [None]
  - DIFFICULTY IN WALKING [None]
  - DRUG EFFECT DECREASED [None]
  - ERYTHEMA [None]
  - FALL [None]
  - FAMILY STRESS [None]
  - FATIGUE [None]
  - GAIT DISTURBANCE [None]
  - GASTRIC DISORDER [None]
  - HAEMORRHOIDS [None]
  - HYPOAESTHESIA [None]
  - INTERVERTEBRAL DISC DISORDER [None]
  - IRRITABLE BOWEL SYNDROME [None]
  - LIMB INJURY [None]
  - MUSCULOSKELETAL DISCOMFORT [None]
  - MUSCULOSKELETAL STIFFNESS [None]
  - MYALGIA [None]
  - NERVOUSNESS [None]
  - NEUROPATHY [None]
  - OEDEMA PERIPHERAL [None]
  - OSTEOPOROSIS [None]
  - PAIN IN EXTREMITY [None]
  - PARAESTHESIA [None]
  - RADICULOPATHY [None]
  - RADIUS FRACTURE [None]
  - ROSACEA [None]
  - ROTATOR CUFF SYNDROME [None]
  - SHOULDER PAIN [None]
  - SKIN DISCOLOURATION [None]
  - SKIN IRRITATION [None]
  - SOMNOLENCE [None]
  - STRESS [None]
  - TALIPES [None]
  - TENDERNESS [None]
  - TENDONITIS [None]
  - TOOTH INFECTION [None]
  - TOOTHACHE [None]
  - WEIGHT INCREASED [None]
